FAERS Safety Report 12327330 (Version 1)
Quarter: 2016Q2

REPORT INFORMATION
  Report Type: Spontaneous
  Country: US (occurrence: None)
  Receive Date: 20160502
  Receipt Date: 20160502
  Transmission Date: 20160815
  Serious: Yes (Death)
  Sender: FDA-Public Use
  Company Number: None

PATIENT
  Age: 54 Year
  Sex: Female

DRUGS (7)
  1. PROCHLORPET [Concomitant]
  2. RELISTOR [Suspect]
     Active Substance: METHYLNALTREXONE BROMIDE
     Indication: CONSTIPATION
     Route: 058
     Dates: start: 20160325, end: 20160429
  3. DOCUSATE [Concomitant]
     Active Substance: DOCUSATE
  4. LACTULOSE. [Concomitant]
     Active Substance: LACTULOSE
  5. METOCLOPRAM [Concomitant]
     Active Substance: METOCLOPRAMIDE
  6. CIPROFLOXACIN. [Concomitant]
     Active Substance: CIPROFLOXACIN
  7. PANTOPRAZ [Concomitant]

REACTIONS (1)
  - Death [None]

NARRATIVE: CASE EVENT DATE: 20160429
